FAERS Safety Report 6107291-X (Version None)
Quarter: 2009Q1

REPORT INFORMATION
  Report Type: 
  Country: None (occurrence: None)
  Receive Date: 20090305
  Receipt Date: 20081211
  Transmission Date: 20090719
  Serious: Yes (Hospitalization)
  Sender: FDA-Public Use
  Company Number: WAES 0810USA03812

PATIENT
  Age: 70 Year
  Sex: Male

DRUGS (17)
  1. CAP APREPITANT [Suspect]
     Indication: PROPHYLAXIS OF NAUSEA AND VOMITING
     Dosage: 125 MG/1X , PO; 80 MG/1X , PO
     Route: 048
     Dates: start: 20081008, end: 20081008
  2. CAP APREPITANT [Suspect]
     Indication: PROPHYLAXIS OF NAUSEA AND VOMITING
     Dosage: 125 MG/1X , PO; 80 MG/1X , PO
     Route: 048
     Dates: start: 20081009, end: 20081009
  3. CAP APREPITANT [Suspect]
     Indication: PROPHYLAXIS OF NAUSEA AND VOMITING
     Dosage: 125 MG/1X , PO; 80 MG/1X , PO
     Route: 048
     Dates: start: 20081010, end: 20081010
  4. DEXAMETHASONE [Suspect]
     Indication: PROPHYLAXIS OF NAUSEA AND VOMITING
     Dosage: 12 MG/1X, PO; 8 MG/AM, PO
     Route: 048
     Dates: start: 20081008, end: 20081008
  5. DEXAMETHASONE [Suspect]
     Indication: PROPHYLAXIS OF NAUSEA AND VOMITING
     Dosage: 12 MG/1X, PO; 8 MG/AM, PO
     Route: 048
     Dates: start: 20081009, end: 20081011
  6. INJ PLACEBO (UNSPECIFIED) [Suspect]
     Indication: PROPHYLAXIS OF NAUSEA AND VOMITING
     Dosage: IV
     Route: 042
     Dates: start: 20081008, end: 20081008
  7. ONDANSETRON HCL [Suspect]
     Indication: PROPHYLAXIS OF NAUSEA AND VOMITING
     Dosage: 50  ML/1X, IV
     Route: 042
     Dates: start: 20081008, end: 20081008
  8. TAB PLACEBO (UNSPECIFIED) [Suspect]
     Indication: PROPHYLAXIS OF NAUSEA AND VOMITING
     Dosage: PO
     Route: 048
     Dates: start: 20081010, end: 20081011
  9. BELOC ZOK MITE [Concomitant]
  10. ISCOVER [Concomitant]
  11. NAVELBINE [Concomitant]
  12. TILIDIN [Concomitant]
  13. VOTUM [Concomitant]
  14. CISPLATIN [Concomitant]
  15. ELECTROLYTES (UNSPECIFIED) [Concomitant]
  16. MORPHINE [Concomitant]
  17. OMEPRAZOLE [Concomitant]

REACTIONS (2)
  - ABDOMINAL PAIN UPPER [None]
  - FAECALOMA [None]
